FAERS Safety Report 7902863-1 (Version None)
Quarter: 2011Q4

REPORT INFORMATION
  Report Type: 
  Country: None (occurrence: None)
  Receive Date: 20111104
  Receipt Date: 20111024
  Transmission Date: 20120403
  Serious: Yes (Hospitalization)
  Sender: FDA-Public Use
  Company Number: 2011SP039057

PATIENT
  Age: 29 Year
  Sex: Female

DRUGS (5)
  1. EBASTINE [Suspect]
     Indication: PRODUCT USED FOR UNKNOWN INDICATION
     Dosage: 10 MG; PO
     Route: 048
     Dates: start: 20100518, end: 20110726
  2. MINOCYCLINE HCL [Suspect]
     Indication: PRODUCT USED FOR UNKNOWN INDICATION
     Dosage: 50 MG; PO
     Route: 048
     Dates: start: 20110530, end: 20110726
  3. CLARITIN [Suspect]
     Indication: URTICARIA
     Dosage: 10 MG;QD;PO
     Route: 048
     Dates: start: 20110705, end: 20110726
  4. PROTECADIN (LAFUTIDINE) [Suspect]
     Indication: PRODUCT USED FOR UNKNOWN INDICATION
     Dosage: 10 MG; PO
     Route: 048
     Dates: start: 20100726, end: 20110726
  5. CELESTAMINE TAB [Suspect]
     Indication: PRODUCT USED FOR UNKNOWN INDICATION
     Dosage: 1 DF; PO
     Route: 048
     Dates: start: 20100726, end: 20110726

REACTIONS (5)
  - ASPARTATE AMINOTRANSFERASE INCREASED [None]
  - DECREASED APPETITE [None]
  - ALANINE AMINOTRANSFERASE INCREASED [None]
  - HEPATIC FUNCTION ABNORMAL [None]
  - OCULAR ICTERUS [None]
